FAERS Safety Report 20643050 (Version 1)
Quarter: 2022Q1

REPORT INFORMATION
  Report Type: Spontaneous
  Country: US (occurrence: US)
  Receive Date: 20220328
  Receipt Date: 20220328
  Transmission Date: 20220423
  Serious: No
  Sender: FDA-Public Use
  Company Number: US-ORGANON-O2203USA002086

PATIENT
  Age: 18 Year
  Sex: Female
  Weight: 49.887 kg

DRUGS (2)
  1. NEXPLANON [Suspect]
     Active Substance: ETONOGESTREL
     Indication: Contraception
     Dosage: 1 IMPLANT (1 ROD) EVERY 3 YEARS IN LEFT ARM
     Route: 059
     Dates: start: 20200914
  2. COVID-19 VACCINE [Concomitant]
     Indication: COVID-19
     Dosage: UNK, BOOSTER SHOT
     Dates: start: 202201

REACTIONS (2)
  - Hypomenorrhoea [Recovered/Resolved]
  - Heavy menstrual bleeding [Not Recovered/Not Resolved]

NARRATIVE: CASE EVENT DATE: 20220201
